FAERS Safety Report 7382908-0 (Version None)
Quarter: 2011Q1

REPORT INFORMATION
  Report Type: 
  Country: None (occurrence: None)
  Receive Date: 20110330
  Receipt Date: 20110308
  Transmission Date: 20110831
  Serious: Yes (Death, Hospitalization, Other)
  Sender: FDA-Public Use
  Company Number: US-BAYER-201011314NA

PATIENT
  Sex: Female
  Weight: 81.633 kg

DRUGS (16)
  1. TRASYLOL [Suspect]
     Indication: MITRAL VALVE REPLACEMENT
     Dosage: 200 ML, UNK
     Dates: start: 20050908, end: 20050908
  2. FENTANYL [Concomitant]
     Indication: PRODUCT USED FOR UNKNOWN INDICATION
     Dosage: 4 / 4 MICROGRAMS
     Route: 042
     Dates: start: 20050908, end: 20050908
  3. DIPRIVAN [Concomitant]
     Indication: PRODUCT USED FOR UNKNOWN INDICATION
     Dosage: 100 MG, UNK
     Route: 042
     Dates: start: 20050908, end: 20050908
  4. NIMBEX [Concomitant]
     Indication: PRODUCT USED FOR UNKNOWN INDICATION
     Dosage: 20 / 20 MG
     Route: 042
     Dates: start: 20050908, end: 20050908
  5. CORDARONE [Concomitant]
     Indication: PRODUCT USED FOR UNKNOWN INDICATION
     Dosage: 33 CC/HOUR
     Route: 042
     Dates: start: 20050908, end: 20050909
  6. HEPARIN SODIUM [Concomitant]
     Indication: PRODUCT USED FOR UNKNOWN INDICATION
     Dosage: 24600 U, UNK
     Route: 042
     Dates: start: 20050908
  7. HEPARIN SODIUM [Concomitant]
     Dosage: 5,000 UNITS TIMES 3 DOSES
     Route: 042
     Dates: start: 20050908, end: 20050908
  8. EPINEPHRINE [Concomitant]
     Indication: PRODUCT USED FOR UNKNOWN INDICATION
     Dosage: TITRATED 5-10 CC/HOUR
     Route: 042
     Dates: start: 20050908, end: 20050912
  9. LIDOCAINE [Concomitant]
     Indication: PRODUCT USED FOR UNKNOWN INDICATION
     Dosage: 200 MG, UNK
     Route: 042
     Dates: start: 20050908, end: 20050908
  10. NIPRIDE [Concomitant]
     Indication: PRODUCT USED FOR UNKNOWN INDICATION
     Dosage: UNK
     Dates: start: 20080912
  11. VERSED [Concomitant]
     Indication: PRODUCT USED FOR UNKNOWN INDICATION
     Dosage: 2 / 2 MG
     Route: 042
     Dates: start: 20050908, end: 20050908
  12. ANCEF [Concomitant]
     Indication: PRODUCT USED FOR UNKNOWN INDICATION
     Dosage: 2 G, UNK
     Route: 042
     Dates: start: 20050908, end: 20050908
  13. NITROGLYCERIN [Concomitant]
     Indication: PRODUCT USED FOR UNKNOWN INDICATION
     Dosage: 100 MCG/100 ML
     Route: 042
     Dates: start: 20050908, end: 20050910
  14. DOBUTAMINE [Concomitant]
     Indication: PRODUCT USED FOR UNKNOWN INDICATION
     Dosage: TITRATED 5-10 CC/HOUR
     Route: 042
     Dates: start: 20050908, end: 20050912
  15. RED BLOOD CELLS [Concomitant]
     Indication: PRODUCT USED FOR UNKNOWN INDICATION
     Dosage: 300 ML, UNK
     Route: 042
     Dates: start: 20050908, end: 20050908
  16. PROTAMINE SULFATE [Concomitant]
     Indication: PRODUCT USED FOR UNKNOWN INDICATION
     Dosage: 246 / 270 MG
     Route: 042
     Dates: start: 20050908, end: 20050908

REACTIONS (14)
  - RENAL IMPAIRMENT [None]
  - DEATH [None]
  - ORGAN FAILURE [None]
  - PAIN [None]
  - RENAL INJURY [None]
  - CARDIAC DISORDER [None]
  - ANXIETY [None]
  - UNEVALUABLE EVENT [None]
  - INJURY [None]
  - RENAL FAILURE [None]
  - CEREBROVASCULAR ACCIDENT [None]
  - FEAR [None]
  - ANHEDONIA [None]
  - DEPRESSION [None]
